FAERS Safety Report 16363767 (Version 1)
Quarter: 2019Q2

REPORT INFORMATION
  Report Type: Spontaneous
  Country: DK (occurrence: DK)
  Receive Date: 20190528
  Receipt Date: 20190528
  Transmission Date: 20190711
  Serious: Yes (Other)
  Sender: FDA-Public Use
  Company Number: PHHY2019DK120514

PATIENT
  Age: 47 Year
  Sex: Male

DRUGS (1)
  1. RITALIN [Suspect]
     Active Substance: METHYLPHENIDATE HYDROCHLORIDE
     Indication: PRODUCT USED FOR UNKNOWN INDICATION
     Dosage: UNK
     Route: 048

REACTIONS (5)
  - Sunburn [Unknown]
  - Skin atrophy [Unknown]
  - Impulsive behaviour [Unknown]
  - Narcolepsy [Unknown]
  - Hallucination [Unknown]

NARRATIVE: CASE EVENT DATE: 2002
